FAERS Safety Report 7220034-1 (Version None)
Quarter: 2011Q1

REPORT INFORMATION
  Report Type: 
  Country: None (occurrence: None)
  Receive Date: 20110111
  Receipt Date: 20101221
  Transmission Date: 20110831
  Serious: Yes (Hospitalization, Congenital Anomaly)
  Sender: FDA-Public Use
  Company Number: A0681068A

PATIENT
  Sex: Male
  Weight: 2.7 kg

DRUGS (12)
  1. PROCARDIA [Concomitant]
     Dates: start: 20031029
  2. CLINDAMYCIN [Concomitant]
     Dates: start: 20030618
  3. ZITHROMAX [Concomitant]
     Dates: start: 20030605
  4. LORTAB [Concomitant]
  5. ACIPHEX [Concomitant]
  6. ATARAX [Concomitant]
  7. ROCEPHIN [Concomitant]
     Dates: start: 20030609, end: 20030609
  8. PROMETHAZINE [Concomitant]
     Indication: NAUSEA
  9. NEXIUM [Concomitant]
  10. OMNICEF [Concomitant]
     Dates: start: 20030602
  11. PAXIL CR [Suspect]
     Indication: DEPRESSION
     Dosage: 25MG PER DAY
     Dates: start: 20021201, end: 20040601
  12. REGLAN [Concomitant]

REACTIONS (6)
  - LUNG DISORDER [None]
  - DRUG EXPOSURE DURING PREGNANCY [None]
  - TACHYPNOEA [None]
  - PNEUMONIA RESPIRATORY SYNCYTIAL VIRAL [None]
  - RESPIRATORY SYNCYTIAL VIRUS INFECTION [None]
  - NEONATAL RESPIRATORY DISTRESS SYNDROME [None]
